FAERS Safety Report 6545940-2 (Version None)
Quarter: 2010Q1

REPORT INFORMATION
  Report Type: 
  Country: None (occurrence: None)
  Receive Date: 20100121
  Receipt Date: 20100119
  Transmission Date: 20100710
  Serious: Yes (Life-Threatening)
  Sender: FDA-Public Use
  Company Number: DE-MERCK-1001DEU00062

PATIENT
  Age: 79 Year
  Sex: Male
  Weight: 98 kg

DRUGS (1)
  1. JANUVIA [Suspect]
     Indication: DIABETES MELLITUS
     Route: 048
     Dates: start: 20091006, end: 20091110

REACTIONS (3)
  - CRITICAL ILLNESS POLYNEUROPATHY [None]
  - PANCREATITIS NECROTISING [None]
  - PSEUDOCYST [None]
